FAERS Safety Report 21151689 (Version 2)
Quarter: 2022Q3

REPORT INFORMATION
  Report Type: Spontaneous
  Country: JP (occurrence: JP)
  Receive Date: 20220730
  Receipt Date: 20220810
  Transmission Date: 20221027
  Serious: No
  Sender: FDA-Public Use
  Company Number: JP-AMGEN-JPNSP2022124289

PATIENT
  Age: 40 Year
  Sex: Male

DRUGS (7)
  1. OTEZLA [Suspect]
     Active Substance: APREMILAST
     Indication: Psoriasis
     Dosage: UNK
     Route: 048
     Dates: start: 20220620, end: 2022
  2. OTEZLA [Suspect]
     Active Substance: APREMILAST
     Dosage: 30 MILLIGRAM, QD (ONCE DAILY IN THE MORNING)
     Route: 048
     Dates: start: 20220704, end: 202207
  3. OTEZLA [Suspect]
     Active Substance: APREMILAST
     Dosage: 30 MILLIGRAM, QD DAILY AT NIGHT)
     Route: 048
     Dates: start: 20220711, end: 202207
  4. OTEZLA [Suspect]
     Active Substance: APREMILAST
     Dosage: 30 MILLIGRAM, QD (10MG IN THE MORNING)+20 MG 8 (AT NIGHT) DAILY
     Route: 048
     Dates: start: 20220720
  5. SAMSCA [Concomitant]
     Active Substance: TOLVAPTAN
     Indication: Hepatic cirrhosis
     Dosage: 3.75 MILLIGRAM, QD
  6. UNSPECIFIED INGREDIENT [Concomitant]
     Active Substance: UNSPECIFIED INGREDIENT
     Indication: Hepatic cirrhosis
     Dosage: 50 GRAM, BID
  7. RIFAXIMIN [Concomitant]
     Active Substance: RIFAXIMIN
     Indication: Hepatic cirrhosis
     Dosage: 400 MILLIGRAM, TID

REACTIONS (1)
  - Nausea [Unknown]

NARRATIVE: CASE EVENT DATE: 20220701
